FAERS Safety Report 4524419-3 (Version None)
Quarter: 2004Q4

REPORT INFORMATION
  Report Type: 
  Country: None (occurrence: None)
  Receive Date: 20041116
  Receipt Date: 20040526
  Transmission Date: 20050328
  Serious: Yes (Other)
  Sender: FDA-Public Use
  Company Number: US-JNJFOC-20040506581

PATIENT
  Age: 41 Year
  Sex: Male

DRUGS (1)
  1. MOTRIN [Suspect]
     Indication: NECK PAIN
     Dosage: 1600 MG, Q4-6H

REACTIONS (1)
  - HYPERSENSITIVITY [None]
